FAERS Safety Report 14186479 (Version 3)
Quarter: 2018Q2

REPORT INFORMATION
  Report Type: Spontaneous
  Country: JP (occurrence: JP)
  Receive Date: 20171114
  Receipt Date: 20180412
  Transmission Date: 20180711
  Serious: Yes (Hospitalization)
  Sender: FDA-Public Use
  Company Number: JP-BAYER-2017-214752

PATIENT
  Age: 52 Year
  Sex: Male
  Weight: 87 kg

DRUGS (1)
  1. AVELOX [Suspect]
     Active Substance: MOXIFLOXACIN HYDROCHLORIDE
     Indication: PNEUMONIA BACTERIAL
     Dosage: 400 MG, QD
     Route: 048
     Dates: start: 20171021, end: 20171022

REACTIONS (8)
  - Pyrexia [Recovered/Resolved]
  - Back pain [Recovering/Resolving]
  - Drug-induced liver injury [Recovering/Resolving]
  - Pain in extremity [Recovering/Resolving]
  - Chest pain [Recovering/Resolving]
  - Malaise [Recovering/Resolving]
  - Rhabdomyolysis [Recovering/Resolving]
  - Myalgia [Recovering/Resolving]

NARRATIVE: CASE EVENT DATE: 20171021
